FAERS Safety Report 4796869-1 (Version None)
Quarter: 2005Q4

REPORT INFORMATION
  Report Type: 
  Country: None (occurrence: None)
  Receive Date: 20051011
  Receipt Date: 20051011
  Transmission Date: 20060501
  Serious: Yes (Hospitalization, Disabling)
  Sender: FDA-Public Use
  Company Number: None

PATIENT
  Age: 45 Year
  Sex: Female
  Weight: 90.7194 kg

DRUGS (1)
  1. LUPRON DEPOT [Suspect]
     Indication: ENDOMETRIOSIS
     Dates: start: 19990831, end: 19990831

REACTIONS (5)
  - BLINDNESS UNILATERAL [None]
  - EYE IRRITATION [None]
  - HORMONE LEVEL ABNORMAL [None]
  - INFLAMMATION [None]
  - OPTIC NEURITIS [None]
